FAERS Safety Report 17130435 (Version 2)
Quarter: 2020Q1

REPORT INFORMATION
  Report Type: Report from Study
  Country: GB (occurrence: GB)
  Receive Date: 20191209
  Receipt Date: 20200109
  Transmission Date: 20200409
  Serious: Yes (Other)
  Sender: FDA-Public Use
  Company Number: GB-PFIZER INC-2019523672

PATIENT
  Age: 25 Year
  Sex: Female

DRUGS (3)
  1. COLOBREATHE [Suspect]
     Active Substance: COLISTIMETHATE SODIUM
     Indication: CYSTIC FIBROSIS
     Dosage: UNK, 1X/DAY (0.6625MIU, ALTERNATE MONTHS)
     Dates: start: 201401
  2. PULMOZYME [Suspect]
     Active Substance: DORNASE ALFA
     Dosage: UNK
  3. TOBRAMYCIN. [Suspect]
     Active Substance: TOBRAMYCIN
     Dosage: UNK

REACTIONS (3)
  - Chest discomfort [Unknown]
  - Respiratory tract irritation [Unknown]
  - Pulmonary haemorrhage [Unknown]
